FAERS Safety Report 8714981 (Version 2)
Quarter: 2012Q4

REPORT INFORMATION
  Report Type: 
  Country: US (occurrence: US)
  Receive Date: 20120809
  Receipt Date: 20120831
  Transmission Date: 20130627
  Serious: Yes (Other)
  Sender: FDA-Public Use
  Company Number: PHEH2012US015373

PATIENT
  Sex: Female

DRUGS (1)
  1. EXELON PATCH [Suspect]
     Dosage: 4.6 mg, UNK
     Route: 062

REACTIONS (3)
  - Dementia [Unknown]
  - Neck pain [Unknown]
  - Musculoskeletal pain [Unknown]
